FAERS Safety Report 19375574 (Version 1)
Quarter: 2021Q2

REPORT INFORMATION
  Report Type: Report from Study
  Country: KR (occurrence: KR)
  Receive Date: 20210605
  Receipt Date: 20210605
  Transmission Date: 20210717
  Serious: Yes (Hospitalization, Other)
  Sender: FDA-Public Use
  Company Number: KR-AMGEN INC.-KORCT2021081847

PATIENT
  Age: 63 Year
  Sex: Female

DRUGS (88)
  1. FILGRASTIM [Suspect]
     Active Substance: FILGRASTIM
     Dosage: UNK, QD (1)
     Route: 065
     Dates: start: 20100621, end: 20100626
  2. FILGRASTIM [Suspect]
     Active Substance: FILGRASTIM
     Dosage: UNK, QD (1)
     Route: 065
     Dates: start: 20110103, end: 20110107
  3. FILGRASTIM [Suspect]
     Active Substance: FILGRASTIM
     Dosage: UNK, QD (1)
     Route: 065
     Dates: start: 20110214, end: 20110214
  4. DECITABINE. [Concomitant]
     Active Substance: DECITABINE
     Dosage: UNK UNK, QD (20)
     Dates: start: 20100607, end: 20100611
  5. DECITABINE. [Concomitant]
     Active Substance: DECITABINE
     Dosage: UNK UNK, QD (20)
     Dates: start: 20110207, end: 20110211
  6. ACICLOVIR [Concomitant]
     Active Substance: ACYCLOVIR
     Indication: PRODUCT USED FOR UNKNOWN INDICATION
     Dosage: 200 MILLIGRAM, QD
     Dates: start: 20100413, end: 20100418
  7. AMITRIPTYLINE [Concomitant]
     Active Substance: AMITRIPTYLINE
     Dosage: 10 MILLIGRAM, QD
     Dates: start: 20100526, end: 20101025
  8. MEROPENEM. [Concomitant]
     Active Substance: MEROPENEM
     Dosage: 500 MILLIGRAM, QD
     Dates: start: 20100709, end: 20100718
  9. VORICONAZOLE. [Concomitant]
     Active Substance: VORICONAZOLE
     Dosage: 240 MILLIGRAM, QD
     Dates: start: 20100224, end: 20100308
  10. FILGRASTIM [Suspect]
     Active Substance: FILGRASTIM
     Dosage: UNK, QD (1)
     Route: 065
     Dates: start: 20100804, end: 20100804
  11. FILGRASTIM [Suspect]
     Active Substance: FILGRASTIM
     Dosage: UNK, QD (1)
     Route: 065
     Dates: start: 20100809, end: 20100809
  12. CEFEPIME [Concomitant]
     Active Substance: CEFEPIME HYDROCHLORIDE
     Dosage: UNK, QD (2)
     Dates: start: 20100706, end: 20100709
  13. CEFEPIME [Concomitant]
     Active Substance: CEFEPIME HYDROCHLORIDE
     Dosage: UNK, QD (2)
     Dates: start: 20100223, end: 20100302
  14. MEROPENEM. [Concomitant]
     Active Substance: MEROPENEM
     Indication: PRODUCT USED FOR UNKNOWN INDICATION
     Dosage: 500 MILLIGRAM, QD
     Dates: start: 20100212, end: 20100216
  15. RANITIDINE. [Concomitant]
     Active Substance: RANITIDINE
     Indication: PRODUCT USED FOR UNKNOWN INDICATION
     Dosage: 50 MILLIGRAM, QD
     Dates: start: 20100721, end: 20100725
  16. SUCRALFATE. [Concomitant]
     Active Substance: SUCRALFATE
     Indication: PRODUCT USED FOR UNKNOWN INDICATION
     Dosage: UNK, QD (12)
     Dates: start: 20100722, end: 20100725
  17. FILGRASTIM [Suspect]
     Active Substance: FILGRASTIM
     Dosage: UNK, QD (1)
     Route: 065
     Dates: start: 20100420, end: 20100501
  18. FILGRASTIM [Suspect]
     Active Substance: FILGRASTIM
     Dosage: UNK, QD (1)
     Route: 065
     Dates: start: 20100617, end: 20100619
  19. FILGRASTIM [Suspect]
     Active Substance: FILGRASTIM
     Dosage: UNK, QD (1)
     Route: 065
     Dates: start: 20100830, end: 20100904
  20. CIPROFLOXACIN. [Concomitant]
     Active Substance: CIPROFLOXACIN
     Indication: PRODUCT USED FOR UNKNOWN INDICATION
     Dosage: 200 MILLIGRAM, QD
     Dates: start: 20101213, end: 20101216
  21. ETODOLAC. [Concomitant]
     Active Substance: ETODOLAC
     Indication: PRODUCT USED FOR UNKNOWN INDICATION
     Dosage: UNK, QD (1)
     Dates: start: 20100303, end: 20100304
  22. HYDROXYZINE [Concomitant]
     Active Substance: HYDROXYZINE HYDROCHLORIDE
     Indication: PRODUCT USED FOR UNKNOWN INDICATION
     Dosage: 10 MILLIGRAM, QD
     Dates: start: 20100221, end: 20100227
  23. ITRACONAZOLE. [Concomitant]
     Active Substance: ITRACONAZOLE
     Dosage: UNK, QD (15)
     Dates: start: 20100705, end: 20100713
  24. MINOCYCLINE [Concomitant]
     Active Substance: MINOCYCLINE HYDROCHLORIDE
     Indication: PRODUCT USED FOR UNKNOWN INDICATION
     Dosage: UNK, QD (5)
     Dates: start: 20100217, end: 20100217
  25. PIPERACILLIN. [Concomitant]
     Active Substance: PIPERACILLIN SODIUM
     Indication: PRODUCT USED FOR UNKNOWN INDICATION
     Dosage: UNK, QD (4.5)
     Dates: start: 20100217, end: 20100218
  26. PIPERACILLIN. [Concomitant]
     Active Substance: PIPERACILLIN SODIUM
     Dosage: UNK, QD (4.5)
     Dates: start: 20100413, end: 20100426
  27. FILGRASTIM [Suspect]
     Active Substance: FILGRASTIM
     Dosage: UNK, QD (1)
     Route: 065
     Dates: start: 20101124, end: 20101124
  28. FILGRASTIM [Suspect]
     Active Substance: FILGRASTIM
     Dosage: UNK, QD (1)
     Route: 065
     Dates: start: 20110124, end: 20110124
  29. CIPROFLOXACIN. [Concomitant]
     Active Substance: CIPROFLOXACIN
     Dosage: 400 MILLIGRAM, QD
     Dates: start: 20101207, end: 20101212
  30. CIPROFLOXACIN. [Concomitant]
     Active Substance: CIPROFLOXACIN
     Dosage: 200 MILLIGRAM, QD
     Dates: start: 20100413, end: 20100426
  31. FILGRASTIM [Suspect]
     Active Substance: FILGRASTIM
     Dosage: UNK, QD (1)
     Route: 065
     Dates: start: 20100405, end: 20100405
  32. FILGRASTIM [Suspect]
     Active Substance: FILGRASTIM
     Dosage: UNK, QD (1)
     Route: 065
     Dates: start: 20100519, end: 20100519
  33. FILGRASTIM [Suspect]
     Active Substance: FILGRASTIM
     Dosage: UNK, QD (1)
     Route: 065
     Dates: start: 20100628, end: 20100703
  34. FILGRASTIM [Suspect]
     Active Substance: FILGRASTIM
     Dosage: UNK, QD (1)
     Route: 065
     Dates: start: 20110114, end: 20110114
  35. DECITABINE. [Concomitant]
     Active Substance: DECITABINE
     Dosage: UNK UNK, QD (20)
     Dates: start: 20100322, end: 20100326
  36. CEFAZOLIN [Concomitant]
     Active Substance: CEFAZOLIN
     Indication: PRODUCT USED FOR UNKNOWN INDICATION
     Dosage: UNK, QD (1)
     Dates: start: 20100911, end: 20100917
  37. CIPROFLOXACIN. [Concomitant]
     Active Substance: CIPROFLOXACIN
     Dosage: 250 MILLIGRAM, QD
     Dates: start: 20100705, end: 20100706
  38. CIPROFLOXACIN. [Concomitant]
     Active Substance: CIPROFLOXACIN
     Dosage: 400 MILLIGRAM, QD
     Dates: start: 20101203, end: 20101206
  39. CIPROFLOXACIN. [Concomitant]
     Active Substance: CIPROFLOXACIN
     Dosage: 500 MILLIGRAM, QD
     Dates: start: 20100427, end: 20100501
  40. MEQUITAZINE [Concomitant]
     Active Substance: MEQUITAZINE
     Indication: PRODUCT USED FOR UNKNOWN INDICATION
     Dosage: 5 MILLIGRAM, QD
     Dates: start: 20100221, end: 20100227
  41. METOCLOPRAMIDE. [Concomitant]
     Active Substance: METOCLOPRAMIDE
     Indication: PRODUCT USED FOR UNKNOWN INDICATION
     Dosage: 10 MILLIGRAM, QD
     Dates: start: 20100410, end: 20100414
  42. SULFAMETHOXAZOLE AND TRIMETHOPRIM [Concomitant]
     Active Substance: SULFAMETHOXAZOLE\TRIMETHOPRIM
     Dosage: 1 DOSAGE FORM, QD
     Dates: start: 20100705, end: 20100706
  43. FILGRASTIM [Suspect]
     Active Substance: FILGRASTIM
     Indication: PRODUCT USED FOR UNKNOWN INDICATION
     Dosage: UNK, QD (1)
     Route: 065
     Dates: start: 20100201, end: 20100210
  44. FILGRASTIM [Suspect]
     Active Substance: FILGRASTIM
     Dosage: UNK, QD (1)
     Route: 065
     Dates: start: 20101004, end: 20101006
  45. FILGRASTIM [Suspect]
     Active Substance: FILGRASTIM
     Dosage: UNK, QD (1)
     Route: 065
     Dates: start: 20110228, end: 20110228
  46. DECITABINE. [Concomitant]
     Active Substance: DECITABINE
     Indication: PRODUCT USED FOR UNKNOWN INDICATION
     Dosage: UNK UNK, QD (20)
     Dates: start: 20100125, end: 20100129
  47. DECITABINE. [Concomitant]
     Active Substance: DECITABINE
     Dosage: UNK UNK, QD (20)
     Dates: start: 20100816, end: 20100820
  48. AMITRIPTYLINE [Concomitant]
     Active Substance: AMITRIPTYLINE
     Indication: PRODUCT USED FOR UNKNOWN INDICATION
     Dosage: 10 MILLIGRAM, QD
     Dates: end: 20100223
  49. CAROVERINE [Concomitant]
     Indication: PRODUCT USED FOR UNKNOWN INDICATION
     Dosage: 40 MILLIGRAM, QD
     Dates: start: 20100721, end: 20100721
  50. CEFEPIME [Concomitant]
     Active Substance: CEFEPIME HYDROCHLORIDE
     Indication: PRODUCT USED FOR UNKNOWN INDICATION
     Dosage: UNK, QD (2)
     Dates: start: 20100202, end: 20100211
  51. CEFEPIME [Concomitant]
     Active Substance: CEFEPIME HYDROCHLORIDE
     Dosage: UNK, QD (2)
     Dates: start: 20100908, end: 20100911
  52. LEVOFLOXACIN. [Concomitant]
     Active Substance: LEVOFLOXACIN
     Indication: PRODUCT USED FOR UNKNOWN INDICATION
     Dosage: 750 MILLIGRAM, QD
     Dates: start: 20110305, end: 20110318
  53. VANCOMYCIN [Concomitant]
     Active Substance: VANCOMYCIN
     Indication: PRODUCT USED FOR UNKNOWN INDICATION
     Dosage: UNK, QD (1)
     Dates: start: 20100212, end: 20100216
  54. FILGRASTIM [Suspect]
     Active Substance: FILGRASTIM
     Dosage: UNK, QD (1)
     Route: 065
     Dates: start: 20100401, end: 20100403
  55. FILGRASTIM [Suspect]
     Active Substance: FILGRASTIM
     Dosage: UNK, QD (1)
     Route: 065
     Dates: start: 20100525, end: 20100525
  56. FILGRASTIM [Suspect]
     Active Substance: FILGRASTIM
     Dosage: UNK, QD (1)
     Route: 065
     Dates: start: 20100705, end: 20150726
  57. FILGRASTIM [Suspect]
     Active Substance: FILGRASTIM
     Dosage: UNK, QD (1)
     Route: 065
     Dates: start: 20100729, end: 20100729
  58. FILGRASTIM [Suspect]
     Active Substance: FILGRASTIM
     Dosage: UNK, QD (1)
     Route: 065
     Dates: start: 20100927, end: 20101001
  59. FILGRASTIM [Suspect]
     Active Substance: FILGRASTIM
     Dosage: UNK, QD (1)
     Route: 065
     Dates: start: 20101011, end: 20101011
  60. FILGRASTIM [Suspect]
     Active Substance: FILGRASTIM
     Dosage: UNK, QD (1)
     Route: 065
     Dates: start: 20201129, end: 20201129
  61. FILGRASTIM [Suspect]
     Active Substance: FILGRASTIM
     Dosage: UNK, QD (1)
     Route: 065
     Dates: start: 20101202, end: 20101224
  62. FILGRASTIM [Suspect]
     Active Substance: FILGRASTIM
     Dosage: UNK, QD (1)
     Route: 065
     Dates: start: 20101227, end: 20101231
  63. FILGRASTIM [Suspect]
     Active Substance: FILGRASTIM
     Dosage: UNK, QD (1)
     Route: 065
     Dates: start: 20110117, end: 20110117
  64. FILGRASTIM [Suspect]
     Active Substance: FILGRASTIM
     Dosage: UNK, QD (1)
     Route: 065
     Dates: start: 20110120, end: 20110120
  65. FILGRASTIM [Suspect]
     Active Substance: FILGRASTIM
     Dosage: UNK, QD (1)
     Route: 065
     Dates: start: 20110302, end: 20110314
  66. ITRACONAZOLE. [Concomitant]
     Active Substance: ITRACONAZOLE
     Dosage: 200 MILLIGRAM, QD
     Dates: start: 20100219, end: 20100223
  67. LEVOFLOXACIN. [Concomitant]
     Active Substance: LEVOFLOXACIN
     Dosage: 750 MILLIGRAM, QD
     Dates: start: 20100301, end: 20100306
  68. SULFAMETHOXAZOLE AND TRIMETHOPRIM [Concomitant]
     Active Substance: SULFAMETHOXAZOLE\TRIMETHOPRIM
     Indication: PRODUCT USED FOR UNKNOWN INDICATION
     Dosage: 1 DOSAGE FORM, QD
     Dates: start: 20100624, end: 20100630
  69. TIROPRAMIDE [Concomitant]
     Active Substance: TIROPRAMIDE
     Indication: PRODUCT USED FOR UNKNOWN INDICATION
     Dosage: 50 MILLIGRAM, QD
     Dates: start: 20100720, end: 20100720
  70. FILGRASTIM [Suspect]
     Active Substance: FILGRASTIM
     Dosage: UNK, QD (1)
     Route: 065
     Dates: start: 20100211, end: 20100310
  71. FILGRASTIM [Suspect]
     Active Substance: FILGRASTIM
     Dosage: UNK, QD (1)
     Route: 065
     Dates: start: 20100329, end: 20100330
  72. FILGRASTIM [Suspect]
     Active Substance: FILGRASTIM
     Dosage: UNK, QD (1)
     Route: 065
     Dates: start: 20100410, end: 20100412
  73. FILGRASTIM [Suspect]
     Active Substance: FILGRASTIM
     Dosage: UNK, QD (1)
     Route: 065
     Dates: start: 20100906, end: 20100925
  74. FILGRASTIM [Suspect]
     Active Substance: FILGRASTIM
     Dosage: UNK, QD (1)
     Route: 065
     Dates: start: 20110110, end: 20110111
  75. FILGRASTIM [Suspect]
     Active Substance: FILGRASTIM
     Dosage: UNK, QD (1)
     Route: 065
     Dates: start: 20110217, end: 20110218
  76. FILGRASTIM [Suspect]
     Active Substance: FILGRASTIM
     Dosage: UNK, QD (1)
     Route: 065
     Dates: start: 20110221, end: 20110226
  77. DECITABINE. [Concomitant]
     Active Substance: DECITABINE
     Dosage: UNK UNK, QD (20)
     Dates: start: 20101117, end: 20101121
  78. ACETYLSALICYLIC ACID [Concomitant]
     Active Substance: ASPIRIN
     Indication: PRODUCT USED FOR UNKNOWN INDICATION
     Dosage: 100 MILLIGRAM, QD
     Dates: end: 20100202
  79. CEFEPIME [Concomitant]
     Active Substance: CEFEPIME HYDROCHLORIDE
     Dosage: UNK, QD (2)
     Dates: start: 20100410, end: 20100412
  80. CIPROFLOXACIN. [Concomitant]
     Active Substance: CIPROFLOXACIN
     Dosage: 250 MILLIGRAM, QD
     Dates: start: 20100624, end: 20100630
  81. HYDROCHLOROTHIAZIDE. [Concomitant]
     Active Substance: HYDROCHLOROTHIAZIDE
     Indication: PRODUCT USED FOR UNKNOWN INDICATION
     Dosage: 12.5 MILLIGRAM, QD
     Dates: end: 20100526
  82. ITRACONAZOLE. [Concomitant]
     Active Substance: ITRACONAZOLE
     Indication: PRODUCT USED FOR UNKNOWN INDICATION
     Dosage: UNK, QD (15)
     Dates: end: 20100630
  83. MEROPENEM. [Concomitant]
     Active Substance: MEROPENEM
     Dosage: 500 MILLIGRAM, QD
     Dates: start: 20100219, end: 20100222
  84. MEROPENEM. [Concomitant]
     Active Substance: MEROPENEM
     Dosage: 500 MILLIGRAM, QD
     Dates: start: 20100721, end: 20100727
  85. PRAVASTATIN. [Concomitant]
     Active Substance: PRAVASTATIN
     Indication: PRODUCT USED FOR UNKNOWN INDICATION
     Dosage: 10 MILLIGRAM, QD
     Dates: end: 20100210
  86. PRAVASTATIN. [Concomitant]
     Active Substance: PRAVASTATIN
     Dosage: 10 MILLIGRAM, QD
     Dates: start: 20100526, end: 20101025
  87. PREDNISOLONE. [Concomitant]
     Active Substance: PREDNISOLONE
     Indication: PRODUCT USED FOR UNKNOWN INDICATION
     Dosage: UNK, QD (1)
     Dates: start: 20100303, end: 20100306
  88. VANCOMYCIN [Concomitant]
     Active Substance: VANCOMYCIN
     Dosage: UNK, QD (1)
     Dates: start: 20100219, end: 20100222

REACTIONS (5)
  - Epigastric discomfort [Recovered/Resolved]
  - Febrile neutropenia [Recovered/Resolved]
  - Sepsis [Recovered/Resolved]
  - Urinary tract infection [Recovered/Resolved]
  - Pancytopenia [Recovered/Resolved]

NARRATIVE: CASE EVENT DATE: 20100202
